FAERS Safety Report 9499635 (Version 2)
Quarter: 2013Q4

REPORT INFORMATION
  Report Type: Spontaneous
  Country: CA (occurrence: None)
  Receive Date: 20130903
  Receipt Date: 20131003
  Transmission Date: 20140711
  Serious: Yes (Hospitalization)
  Sender: FDA-Public Use
  Company Number: CA-012840

PATIENT
  Age: 77 Year
  Sex: Male

DRUGS (2)
  1. DEGARELIX [Suspect]
     Indication: PROSTATE CANCER
     Dosage: 80 MG 1X/MONTH SUBCUTANEOUS
     Route: 058
  2. ZOCOR [Concomitant]

REACTIONS (1)
  - Inflammation [None]
